FAERS Safety Report 5419126-9 (Version None)
Quarter: 2007Q3

REPORT INFORMATION
  Report Type: 
  Country: None (occurrence: None)
  Receive Date: 20070820
  Receipt Date: 20070809
  Transmission Date: 20080115
  Serious: Yes (Other)
  Sender: FDA-Public Use
  Company Number: PHBS2007JP12622

PATIENT
  Age: 56 Year
  Sex: Female

DRUGS (4)
  1. GLEEVEC [Suspect]
     Indication: ACUTE LYMPHOCYTIC LEUKAEMIA
     Dosage: 600 MG/D
     Route: 048
     Dates: start: 20070718, end: 20070722
  2. VINCRISTINE [Suspect]
     Dates: start: 20070711
  3. CYCLOPHOSPHAMIDE [Concomitant]
     Dates: start: 20070711
  4. DAUNORUBICIN HCL [Concomitant]
     Dates: start: 20070711

REACTIONS (4)
  - BLOOD SODIUM DECREASED [None]
  - INAPPROPRIATE ANTIDIURETIC HORMONE SECRETION [None]
  - OEDEMA [None]
  - WEIGHT INCREASED [None]
